FAERS Safety Report 4415549-5 (Version None)
Quarter: 2004Q3

REPORT INFORMATION
  Report Type: 
  Country: None (occurrence: None)
  Receive Date: 20040730
  Receipt Date: 20040723
  Transmission Date: 20050211
  Serious: Yes (Hospitalization)
  Sender: FDA-Public Use
  Company Number: TCI2004A02914

PATIENT
  Age: 70 Year
  Sex: Female

DRUGS (8)
  1. ACTOS [Suspect]
     Indication: DIABETES MELLITUS
     Dosage: 15 MG (15 MG, 1 D ) PER ORAL
     Route: 048
     Dates: end: 20040723
  2. TICLOPIDINE HCL [Suspect]
     Dosage: 200 MG (200 MG, 1 D) PER ORAL
     Route: 048
     Dates: start: 20040601, end: 20040722
  3. LIPITOR [Suspect]
     Dosage: 10 MG (10 MG, 1 D) PER ORAL
     Route: 048
     Dates: end: 20040722
  4. ASPIRIN [Suspect]
     Dosage: PER ORAL
     Route: 048
  5. ISOSORBIDE MONONITRATE [Concomitant]
  6. MARZULENE S [Concomitant]
  7. FUROSEMIDE [Concomitant]
  8. LECITHIN [Concomitant]

REACTIONS (3)
  - ALANINE AMINOTRANSFERASE INCREASED [None]
  - ASPARTATE AMINOTRANSFERASE INCREASED [None]
  - BLOOD BILIRUBIN INCREASED [None]
